FAERS Safety Report 25353475 (Version 2)
Quarter: 2025Q3

REPORT INFORMATION
  Report Type: Report from Study
  Country: CA (occurrence: CA)
  Receive Date: 20250523
  Receipt Date: 20250828
  Transmission Date: 20251020
  Serious: Yes (Hospitalization, Other)
  Sender: AMARIN
  Company Number: CA-Amarin Pharma  Inc-2025AMR000381

PATIENT
  Age: 74 Year
  Sex: Male

DRUGS (1)
  1. VASCEPA [Suspect]
     Active Substance: ICOSAPENT ETHYL
     Indication: Cardiovascular event prophylaxis
     Dates: start: 20240529, end: 2025

REACTIONS (4)
  - Tracheostomy [Not Recovered/Not Resolved]
  - Abdominal sepsis [Unknown]
  - Malignant melanoma [Unknown]
  - Skin neoplasm excision [Unknown]

NARRATIVE: CASE EVENT DATE: 20250101
